FAERS Safety Report 17184773 (Version 1)
Quarter: 2019Q4

REPORT INFORMATION
  Report Type: Spontaneous
  Country: US (occurrence: US)
  Receive Date: 20191127
  Receipt Date: 20191127
  Transmission Date: 20200122
  Serious: No
  Sender: FDA-Public Use
  Company Number: None

PATIENT
  Age: 40 Year
  Sex: Female

DRUGS (5)
  1. MESALAMINE SUP [Concomitant]
  2. NORETHINDRON [Concomitant]
  3. AZATHIOPRINE TAB [Concomitant]
  4. HUMIRA [Suspect]
     Active Substance: ADALIMUMAB
     Indication: COLITIS ULCERATIVE
     Dosage: 40  MG / 0.4 ML :1X WK EVERY 7 DAY ;?
     Route: 058
     Dates: start: 20190114
  5. XIDRA DRO [Concomitant]

REACTIONS (1)
  - Mastectomy [None]

NARRATIVE: CASE EVENT DATE: 20191126
